FAERS Safety Report 4646032-X (Version None)
Quarter: 2005Q2

REPORT INFORMATION
  Report Type: 
  Country: None (occurrence: None)
  Receive Date: 20050425
  Receipt Date: 20050411
  Transmission Date: 20051028
  Serious: Yes (Other)
  Sender: FDA-Public Use
  Company Number: 2005059977

PATIENT
  Age: 81 Year
  Sex: Female

DRUGS (3)
  1. BEXTRA [Suspect]
     Indication: ILL-DEFINED DISORDER
  2. HYDROCODONE BITARTRATE [Concomitant]
  3. ALL OTHER THERAPEUTIC PRODUCTS (ALL OTHER THERAPEUT [Concomitant]

REACTIONS (3)
  - ERYTHEMA MULTIFORME [None]
  - PYREXIA [None]
  - STEVENS-JOHNSON SYNDROME [None]
